FAERS Safety Report 7883402-0 (Version None)
Quarter: 2011Q4

REPORT INFORMATION
  Report Type: 
  Country: None (occurrence: None)
  Receive Date: 20111102
  Receipt Date: 20111025
  Transmission Date: 20120403
  Serious: Yes (Hospitalization)
  Sender: FDA-Public Use
  Company Number: UA-B.I. PHARMACEUTICALS,INC./RIDGEFIELD-2011-AP-00524AP

PATIENT
  Age: 82 Year
  Sex: Female

DRUGS (5)
  1. ANTIINFLAMMATORY THERAPY [Concomitant]
  2. PRADAXA [Suspect]
     Indication: HIP ARTHROPLASTY
     Dosage: 220 MG
     Route: 048
     Dates: start: 20110615, end: 20110625
  3. ANTIBIOTICS [Concomitant]
  4. ANTIHYPERGLYCEMIC [Concomitant]
  5. ANALGETIC [Concomitant]

REACTIONS (3)
  - POST PROCEDURAL HAEMATOMA [None]
  - WOUND INFECTION [None]
  - OSTEOMYELITIS [None]
